FAERS Safety Report 8900619 (Version 1)
Quarter: 2012Q4

REPORT INFORMATION
  Report Type: 
  Country: US (occurrence: US)
  Receive Date: 20121109
  Receipt Date: 20121109
  Transmission Date: 20130627
  Serious: No
  Sender: FDA-Public Use
  Company Number: US-B.I. PHARMACEUTICALS,INC./RIDGEFIELD-2012-BP-27413BP

PATIENT
  Sex: Male
  Weight: 103 kg

DRUGS (10)
  1. PRADAXA [Suspect]
     Indication: ATRIAL FIBRILLATION
     Dosage: 300 mg
     Route: 048
     Dates: start: 201203
  2. PROAIR HFA [Concomitant]
     Indication: ASTHMA
     Route: 055
  3. MAGNESIUM [Concomitant]
     Route: 048
  4. LISINOPRIL [Concomitant]
     Dosage: 5 mg
     Route: 048
  5. FUROSEMIDE [Concomitant]
     Dosage: 20 mg
     Route: 048
  6. SIMVASTATIN [Concomitant]
     Indication: BLOOD CHOLESTEROL INCREASED
     Dosage: 10 mg
     Route: 048
  7. ATENOLOL [Concomitant]
     Indication: HYPERTENSION
     Dosage: 50 mg
     Route: 048
  8. METFORMIN [Concomitant]
     Indication: DIABETES MELLITUS
     Dosage: 1700 mg
     Route: 048
  9. VITAMIN D [Concomitant]
     Dosage: 2000 U
     Route: 048
  10. ALLOPURINOL [Concomitant]
     Indication: GOUT
     Dosage: 400 mg
     Route: 048

REACTIONS (1)
  - Skin discolouration [Not Recovered/Not Resolved]
